FAERS Safety Report 24702159 (Version 1)
Quarter: 2024Q4

REPORT INFORMATION
  Report Type: Spontaneous
  Country: US (occurrence: None)
  Receive Date: 20241205
  Receipt Date: 20241205
  Transmission Date: 20250115
  Serious: No
  Sender: Public
  Company Number: None

PATIENT
  Age: 45 Year
  Sex: Female

DRUGS (1)
  1. EVRYSDI [Suspect]
     Active Substance: RISDIPLAM
     Dosage: 6.6 ML QD ORAL
     Route: 048

REACTIONS (13)
  - Dizziness [None]
  - Depressed level of consciousness [None]
  - Nausea [None]
  - Diarrhoea [None]
  - Cold sweat [None]
  - Hot flush [None]
  - Taste disorder [None]
  - Paraesthesia oral [None]
  - Limb discomfort [None]
  - Fatigue [None]
  - Dysgeusia [None]
  - Therapy cessation [None]
  - Heart rate increased [None]

NARRATIVE: CASE EVENT DATE: 20241127
